FAERS Safety Report 6771029-3 (Version None)
Quarter: 2010Q2

REPORT INFORMATION
  Report Type: 
  Country: None (occurrence: None)
  Receive Date: 20100616
  Receipt Date: 20100602
  Transmission Date: 20101027
  Serious: Yes (Hospitalization)
  Sender: FDA-Public Use
  Company Number: JP-RANBAXY-2010RR-34492

PATIENT
  Age: 11 Month
  Sex: Female

DRUGS (4)
  1. PHENOBARBITAL [Suspect]
  2. CARBAMAZEPINE [Suspect]
     Route: 048
  3. PHENYTOIN [Suspect]
  4. DIAZEPAM [Concomitant]
     Indication: CONVULSION

REACTIONS (5)
  - DRUG RASH WITH EOSINOPHILIA AND SYSTEMIC SYMPTOMS [None]
  - GENERALISED ERYTHEMA [None]
  - LYMPHADENOPATHY [None]
  - PYREXIA [None]
  - RASH ERYTHEMATOUS [None]
